FAERS Safety Report 8415615-3 (Version None)
Quarter: 2012Q2

REPORT INFORMATION
  Report Type: 
  Country: None (occurrence: None)
  Receive Date: 20120530
  Receipt Date: 20120518
  Transmission Date: 20120825
  Serious: Yes (Hospitalization, Other)
  Sender: FDA-Public Use
  Company Number: AUR-APL-2012-02254

PATIENT
  Age: 48 Year
  Sex: Male
  Weight: 86.08 kg

DRUGS (16)
  1. BUTALBITAL, ACETAMINOPHEN + CAFFEINE (AXOTAL /00727001/) [Concomitant]
  2. AMITRIPTYLINE HCL [Concomitant]
  3. ATROPINE [Concomitant]
  4. TRAZODONE HCL [Concomitant]
  5. DILTIAZEM [Concomitant]
  6. HYDROCODONE BITARTRATE [Concomitant]
  7. OMEPRAZOLE [Concomitant]
  8. GABAPENTIN [Concomitant]
  9. ZIPRASIDONE HCL [Suspect]
     Indication: POST-TRAUMATIC STRESS DISORDER
     Dosage: (MG, 2 IN 1 D), UNKNOWN
     Dates: start: 20120427, end: 20120502
  10. CLOTRIMAZOLE [Concomitant]
  11. PAROXETINE HCL [Suspect]
     Indication: POST-TRAUMATIC STRESS DISORDER
     Dosage: 40 MG (40 MG, 1 IN 1 D), UNKNOWN
     Dates: start: 20120309
  12. THIAMINE HCL [Concomitant]
  13. DEXTROMETHORPHAN HYDROBROMIDE/GUAIFENESIN (TUSSIN DM) [Concomitant]
  14. HYDROCORTONE [Concomitant]
  15. ACAMPROSATE CALCIUM [Concomitant]
  16. MULTIVITAMIN [Concomitant]

REACTIONS (1)
  - PRINZMETAL ANGINA [None]
